FAERS Safety Report 6771019-0 (Version None)
Quarter: 2010Q2

REPORT INFORMATION
  Report Type: 
  Country: None (occurrence: None)
  Receive Date: 20100616
  Receipt Date: 20100604
  Transmission Date: 20101027
  Serious: Yes (Other)
  Sender: FDA-Public Use
  Company Number: US-BAYER-201024882NA

PATIENT
  Age: 23 Year
  Sex: Female

DRUGS (4)
  1. YASMIN [Suspect]
     Indication: DRUG USE FOR UNKNOWN INDICATION
     Route: 048
     Dates: start: 20051104, end: 20061106
  2. YASMIN [Suspect]
     Route: 048
     Dates: start: 20070108, end: 20070403
  3. YASMIN [Suspect]
     Route: 048
     Dates: start: 20070625, end: 20080621
  4. YAZ [Suspect]
     Indication: DRUG USE FOR UNKNOWN INDICATION
     Route: 048
     Dates: start: 20070509, end: 20070625

REACTIONS (2)
  - CHOLECYSTECTOMY [None]
  - DEEP VEIN THROMBOSIS [None]
